FAERS Safety Report 12564055 (Version 1)
Quarter: 2016Q3

REPORT INFORMATION
  Report Type: Spontaneous
  Country: US (occurrence: None)
  Receive Date: 20160715
  Receipt Date: 20160715
  Transmission Date: 20161109
  Serious: No
  Sender: FDA-Public Use
  Company Number: None

PATIENT
  Age: 16 Year
  Sex: Female
  Weight: 58.5 kg

DRUGS (3)
  1. MERCAPTOPURINE. [Suspect]
     Active Substance: MERCAPTOPURINE
     Dates: end: 20160623
  2. METHOTREXATE. [Suspect]
     Active Substance: METHOTREXATE
     Dates: end: 20160607
  3. VINCRISTINE SULFATE. [Suspect]
     Active Substance: VINCRISTINE SULFATE
     Dates: end: 20160617

REACTIONS (12)
  - Mucosal inflammation [None]
  - Hypophagia [None]
  - Oral pain [None]
  - Gastrointestinal necrosis [None]
  - Ventricular fibrillation [None]
  - Hypotension [None]
  - Diarrhoea [None]
  - Tachycardia [None]
  - Gallbladder necrosis [None]
  - Hepatic ischaemia [None]
  - Sepsis [None]
  - Clostridium difficile colitis [None]

NARRATIVE: CASE EVENT DATE: 20160628
